FAERS Safety Report 8588238-3 (Version None)
Quarter: 2012Q3

REPORT INFORMATION
  Report Type: 
  Country: None (occurrence: None)
  Receive Date: 20120813
  Receipt Date: 20120806
  Transmission Date: 20120928
  Serious: Yes (Hospitalization)
  Sender: FDA-Public Use
  Company Number: GB-UCBSA-063268

PATIENT
  Age: 81 Year
  Sex: Male
  Weight: 70 kg

DRUGS (13)
  1. HYDROXYCHLOROQUINE SULFATE [Concomitant]
     Route: 048
  2. LANSOPRAZOLE [Concomitant]
     Route: 048
  3. ASPIRIN [Concomitant]
     Route: 048
  4. PREDNISOLONE [Concomitant]
     Dosage: REDUCED TO 20MG FOR 1 WEEK; 7/7 THEN REDUCE TO 10MG
     Route: 048
     Dates: start: 20111001
  5. RAMIPRIL [Concomitant]
     Dates: end: 20111001
  6. ATENOLOL [Concomitant]
     Dates: end: 20111001
  7. ADCAL D3 [Concomitant]
     Dosage: DOSE: 1 TABLET
     Route: 048
  8. RAMIPRIL [Concomitant]
     Dosage: DOSE INCREASED TO 5MG
     Route: 048
     Dates: start: 20111001
  9. PREDNISOLONE [Concomitant]
  10. CIMZIA [Suspect]
     Indication: RHEUMATOID ARTHRITIS
     Route: 058
     Dates: start: 20110901, end: 20111209
  11. PREDNISOLONE [Concomitant]
     Dosage: INCREASED TO 30MG
     Dates: end: 20111001
  12. SIMVASTATIN [Concomitant]
     Dosage: NOCTE
     Route: 048
  13. ALENDRONATE SODIUM [Concomitant]
     Route: 048

REACTIONS (1)
  - INTERSTITIAL LUNG DISEASE [None]
